FAERS Safety Report 23989183 (Version 2)
Quarter: 2024Q3

REPORT INFORMATION
  Report Type: Spontaneous
  Country: AU (occurrence: None)
  Receive Date: 20240619
  Receipt Date: 20240705
  Transmission Date: 20241017
  Serious: Yes (Hospitalization, Disabling)
  Sender: ORION
  Company Number: AU-PFIZER INC-PV202200066658

PATIENT
  Age: 42 Year
  Sex: Female
  Weight: 94 kg

DRUGS (14)
  1. METHOTREXATE [Suspect]
     Active Substance: METHOTREXATE
     Indication: Hidradenitis
  2. INFLIXIMAB [Suspect]
     Active Substance: INFLIXIMAB
     Indication: Product used for unknown indication
  3. CLINDAMYCIN HYDROCHLORIDE [Suspect]
     Active Substance: CLINDAMYCIN HYDROCHLORIDE
     Indication: Hidradenitis
  4. DOXYCYCLINE HYCLATE [Suspect]
     Active Substance: DOXYCYCLINE HYCLATE
     Indication: Hidradenitis
  5. MINOCYCLINE [Suspect]
     Active Substance: MINOCYCLINE HYDROCHLORIDE
     Indication: Hidradenitis
  6. HUMIRA [Suspect]
     Active Substance: ADALIMUMAB
     Indication: Hidradenitis
     Dates: start: 2018
  7. KINERET [Suspect]
     Active Substance: ANAKINRA
     Indication: Hidradenitis
  8. CLINDAMYCIN PHOSPHATE [Suspect]
     Active Substance: CLINDAMYCIN PHOSPHATE
     Indication: Product used for unknown indication
  9. MINOCYCLINE HYDROCHLORIDE DIHYDRATE [Suspect]
     Active Substance: MINOCYCLINE HYDROCHLORIDE DIHYDRATE
     Indication: Product used for unknown indication
  10. MINOCYCLINE HYDROCHLORIDE DIHYDRATE [Suspect]
     Active Substance: MINOCYCLINE HYDROCHLORIDE DIHYDRATE
  11. DOXYCYCLINE [Suspect]
     Active Substance: DOXYCYCLINE\DOXYCYCLINE HYCLATE
     Indication: Product used for unknown indication
  12. ADALIMUMAB [Suspect]
     Active Substance: ADALIMUMAB\ISOPROPYL ALCOHOL
     Indication: Product used for unknown indication
  13. REMICADE [Suspect]
     Active Substance: INFLIXIMAB
     Indication: Hidradenitis
     Dates: start: 2012, end: 2015
  14. DOXYCYCLINE HYDROCHLORIDE [Suspect]
     Active Substance: DOXYCYCLINE HYDROCHLORIDE
     Indication: Product used for unknown indication

REACTIONS (7)
  - Therapeutic product effect incomplete [Unknown]
  - Feeling abnormal [Unknown]
  - Depression [Unknown]
  - Pain [Unknown]
  - Condition aggravated [Unknown]
  - Psychiatric symptom [Unknown]
  - Product use in unapproved indication [Unknown]
